FAERS Safety Report 23064538 (Version 1)
Quarter: 2023Q4

REPORT INFORMATION
  Report Type: Report from Study
  Country: IT (occurrence: IT)
  Receive Date: 20231013
  Receipt Date: 20231013
  Transmission Date: 20240109
  Serious: Yes (Other)
  Sender: FDA-Public Use
  Company Number: None

PATIENT
  Age: 54 Year
  Sex: Female

DRUGS (4)
  1. OLMESARTAN MEDOXOMIL [Suspect]
     Active Substance: OLMESARTAN MEDOXOMIL
     Indication: Hypertension
     Dosage: DOSAGE: 10 UNIT OF MEASUREMENT: MILLIGRAMS
     Dates: start: 20230328
  2. RAMIPRIL [Suspect]
     Active Substance: RAMIPRIL
     Indication: Hypertension
     Dosage: DOSAGE: 5 UNIT OF MEASUREMENT: MILLIGRAMS
     Dates: start: 20230328
  3. LEVOTHYROXINE SODIUM [Concomitant]
     Active Substance: LEVOTHYROXINE SODIUM
     Indication: Hypothyroidism
     Dosage: DOSAGE: 100 UNIT OF MEASUREMENT: MICROGRAMS
  4. LEVOTHYROXINE SODIUM [Concomitant]
     Active Substance: LEVOTHYROXINE SODIUM
     Indication: Hypothyroidism
     Dosage: DOSAGE: 75 UNIT OF MEASUREMENT: MICROGRAMS ROUTE OF ADMINISTRATION: ORAL

REACTIONS (4)
  - Headache [Recovering/Resolving]
  - Angina pectoris [Recovering/Resolving]
  - Palpitations [Recovering/Resolving]
  - Blood pressure increased [Recovering/Resolving]

NARRATIVE: CASE EVENT DATE: 20230331
